FAERS Safety Report 18871154 (Version 1)
Quarter: 2021Q1

REPORT INFORMATION
  Report Type: Spontaneous
  Country: FR (occurrence: FR)
  Receive Date: 20210210
  Receipt Date: 20210210
  Transmission Date: 20210420
  Serious: Yes (Hospitalization)
  Sender: FDA-Public Use
  Company Number: FR-ROCHE-2766208

PATIENT
  Age: 37 Year
  Sex: Male

DRUGS (1)
  1. VALIUM [Suspect]
     Active Substance: DIAZEPAM
     Indication: DRUG WITHDRAWAL MAINTENANCE THERAPY
     Route: 065
     Dates: start: 201906

REACTIONS (1)
  - Drug use disorder [Recovering/Resolving]

NARRATIVE: CASE EVENT DATE: 201912
